FAERS Safety Report 14175864 (Version 1)
Quarter: 2017Q4

REPORT INFORMATION
  Report Type: Spontaneous
  Country: NL (occurrence: NL)
  Receive Date: 20171109
  Receipt Date: 20171109
  Transmission Date: 20180321
  Serious: Yes (Other)
  Sender: FDA-Public Use
  Company Number: NL-TEVA-823739ROM

PATIENT
  Age: 54 Year
  Sex: Female
  Weight: 86 kg

DRUGS (1)
  1. OXYCODON HCL AUROBINDO RETARD 10 MG PROLONGED RELEASED TABLET [Suspect]
     Active Substance: OXYCODONE HYDROCHLORIDE
     Indication: PAIN
     Dosage: 80 MILLIGRAM DAILY;
     Route: 048
     Dates: start: 20171017

REACTIONS (12)
  - Mood swings [Unknown]
  - Somnolence [Unknown]
  - Suicidal ideation [Unknown]
  - Hyperhidrosis [Unknown]
  - Constipation [Unknown]
  - Weight increased [Unknown]
  - Dysgeusia [Unknown]
  - Sleep disorder [Unknown]
  - Listless [Unknown]
  - Therapeutic response unexpected [Not Recovered/Not Resolved]
  - Nausea [Unknown]
  - Drug ineffective [Unknown]

NARRATIVE: CASE EVENT DATE: 20171017
